FAERS Safety Report 6166770-X (Version None)
Quarter: 2009Q2

REPORT INFORMATION
  Report Type: 
  Country: None (occurrence: None)
  Receive Date: 20090424
  Receipt Date: 20081127
  Transmission Date: 20091009
  Serious: Yes (Hospitalization)
  Sender: FDA-Public Use
  Company Number: PT-PFIZER INC-2008100652

PATIENT

DRUGS (10)
  1. BLINDED *PLACEBO [Suspect]
     Indication: CARDIAC FAILURE
     Dosage: 25 MG, 1X/DAY
     Dates: start: 20080403
  2. BLINDED EPLERENONE [Suspect]
     Indication: CARDIAC FAILURE
     Dosage: 25 MG, 1X/DAY
     Dates: start: 20080403
  3. METOLAZONE [Concomitant]
  4. LASIX [Concomitant]
  5. OMEPRAZOL [Concomitant]
     Dosage: UNK
  6. BISOPROLOL FUMARATE [Concomitant]
     Dosage: UNK
  7. LANOXIN [Concomitant]
  8. PERINDOPRIL ERBUMINE [Concomitant]
  9. DIULO [Concomitant]
  10. VARFINE [Concomitant]
     Dosage: 35 MG, WEEKLY

REACTIONS (2)
  - HYPONATRAEMIA [None]
  - PSYCHOMOTOR HYPERACTIVITY [None]
